FAERS Safety Report 17844882 (Version 2)
Quarter: 2020Q2

REPORT INFORMATION
  Report Type: Report from Study
  Country: None (occurrence: DE)
  Receive Date: 20200601
  Receipt Date: 20200612
  Transmission Date: 20200714
  Serious: Yes (Hospitalization)
  Sender: FDA-Public Use
  Company Number: DE-ABBVIE-20K-062-3380539-00

PATIENT
  Age: 44 Year
  Sex: Male

DRUGS (12)
  1. ANDROCUR [Concomitant]
     Active Substance: CYPROTERONE ACETATE
     Indication: PRODUCT USED FOR UNKNOWN INDICATION
     Route: 048
  2. MADOPAR [Concomitant]
     Active Substance: BENSERAZIDE HYDROCHLORIDE\LEVODOPA
     Dosage: 0.5
     Route: 048
  3. LORAZEPAM. [Concomitant]
     Active Substance: LORAZEPAM
     Indication: PRODUCT USED FOR UNKNOWN INDICATION
     Dosage: 1.0 TABLET
     Route: 048
  4. PANTOPRAZOL HEXAL [Concomitant]
     Active Substance: PANTOPRAZOLE
     Indication: PRODUCT USED FOR UNKNOWN INDICATION
     Dosage: STOMACH ACID RESISTANT
     Route: 048
  5. OPICAPONE [Concomitant]
     Active Substance: OPICAPONE
     Indication: PRODUCT USED FOR UNKNOWN INDICATION
     Dosage: IF REQUIRED ONCE DAILY
  6. MADOPAR [Concomitant]
     Active Substance: BENSERAZIDE HYDROCHLORIDE\LEVODOPA
     Indication: PRODUCT USED FOR UNKNOWN INDICATION
     Dosage: 0,25 (MAX/ 1.00)
     Route: 048
  7. FOLIC ACID. [Concomitant]
     Active Substance: FOLIC ACID
     Indication: PRODUCT USED FOR UNKNOWN INDICATION
     Route: 048
  8. METAMIZOL [Concomitant]
     Active Substance: METAMIZOLE SODIUM
     Indication: PRODUCT USED FOR UNKNOWN INDICATION
     Dosage: 1.00, MAX 4.0
     Route: 048
  9. VITAMIN B12 [Concomitant]
     Active Substance: CYANOCOBALAMIN
     Indication: PRODUCT USED FOR UNKNOWN INDICATION
     Route: 058
  10. QUETIAPIN [Concomitant]
     Active Substance: QUETIAPINE
     Indication: PRODUCT USED FOR UNKNOWN INDICATION
     Route: 048
  11. ZOPICLON [Concomitant]
     Active Substance: ZOPICLONE
     Indication: PRODUCT USED FOR UNKNOWN INDICATION
     Dosage: 1.0 (MAX. 1.00)
     Route: 048
  12. DUODOPA [Suspect]
     Active Substance: CARBIDOPA\LEVODOPA
     Indication: PARKINSON^S DISEASE
     Dosage: MD 3 ML CRD 3 ML/H CRN 1.9 ML/H ED 0.9 ML
     Route: 050
     Dates: start: 20190207

REACTIONS (41)
  - Back pain [Unknown]
  - Device occlusion [Unknown]
  - Dyskinesia [Unknown]
  - Disturbance in attention [Unknown]
  - Overdose [Unknown]
  - Nutritional condition abnormal [Recovered/Resolved]
  - Blood creatine phosphokinase increased [Unknown]
  - Asthenia [Unknown]
  - Fall [Unknown]
  - Depressed mood [Unknown]
  - Mobility decreased [Unknown]
  - Red blood cell count decreased [Unknown]
  - Device kink [Unknown]
  - Speech disorder [Unknown]
  - Dysdiadochokinesis [Unknown]
  - Mean cell haemoglobin concentration increased [Unknown]
  - Blood creatinine decreased [Unknown]
  - Pelvic pain [Recovered/Resolved]
  - Hyperkinesia [Unknown]
  - Hypokinesia [Unknown]
  - Akinesia [Unknown]
  - Hypermobility syndrome [Recovered/Resolved]
  - Dysarthria [Unknown]
  - Muscle rigidity [Unknown]
  - General physical health deterioration [Unknown]
  - Nutritional condition abnormal [Unknown]
  - Blood creatinine decreased [Recovered/Resolved]
  - Hyperkinesia [Recovered/Resolved]
  - Mucosal discolouration [Unknown]
  - Tooth disorder [Unknown]
  - Haemoglobin decreased [Unknown]
  - Red blood cell count decreased [Recovered/Resolved]
  - C-reactive protein increased [Unknown]
  - Diarrhoea [Recovered/Resolved]
  - Pain in extremity [Unknown]
  - Dysarthria [Unknown]
  - Haematocrit decreased [Unknown]
  - Blood glucose decreased [Unknown]
  - Hypermobility syndrome [Unknown]
  - Immobile [Unknown]
  - Device dislocation [Unknown]

NARRATIVE: CASE EVENT DATE: 201905
